FAERS Safety Report 6151798-6 (Version None)
Quarter: 2009Q2

REPORT INFORMATION
  Report Type: 
  Country: None (occurrence: None)
  Receive Date: 20090410
  Receipt Date: 20090331
  Transmission Date: 20091009
  Serious: Yes (Other)
  Sender: FDA-Public Use
  Company Number: FR-PFIZER INC-2009187361

PATIENT

DRUGS (4)
  1. GABAPENTIN [Suspect]
     Dosage: 300 MG, 3X/DAY
     Route: 048
  2. OMEPRAZOL [Suspect]
     Dosage: 40 MG, 1X/DAY
     Route: 048
  3. PARACETAMOL [Suspect]
     Dosage: 1 G, 4X/DAY
  4. NIMODIPINE [Suspect]
     Dosage: 2 MG, UNK
     Route: 042

REACTIONS (1)
  - COMA [None]
